FAERS Safety Report 7007804-X (Version None)
Quarter: 2010Q3

REPORT INFORMATION
  Report Type: 
  Country: None (occurrence: None)
  Receive Date: 20100922
  Receipt Date: 20100921
  Transmission Date: 20110219
  Serious: Yes (Death)
  Sender: FDA-Public Use
  Company Number: GB-BRISTOL-MYERS SQUIBB COMPANY-15238777

PATIENT
  Age: 72 Year
  Sex: Female
  Weight: 70 kg

DRUGS (5)
  1. SPRYCEL [Suspect]
     Indication: CHRONIC MYELOID LEUKAEMIA
     Dosage: ALTERNATE DAYS
     Route: 048
     Dates: start: 20071101, end: 20100601
  2. CYCLOPHOSPHAMIDE [Suspect]
     Indication: LYMPHOMA
  3. DOXORUBICIN HCL [Suspect]
     Indication: LYMPHOMA
  4. VINCRISTINE SULFATE [Suspect]
     Indication: LYMPHOMA
  5. PREDNISOLONE [Suspect]
     Indication: LYMPHOMA

REACTIONS (1)
  - OVARIAN CANCER [None]
